FAERS Safety Report 5756623-0 (Version None)
Quarter: 2008Q2

REPORT INFORMATION
  Report Type: 
  Country: None (occurrence: None)
  Receive Date: 20080603
  Receipt Date: 20080530
  Transmission Date: 20081010
  Serious: Yes (Hospitalization)
  Sender: FDA-Public Use
  Company Number: AT-BRISTOL-MYERS SQUIBB COMPANY-14163240

PATIENT
  Age: 70 Year
  Sex: Female

DRUGS (5)
  1. TRITTICO AC TABS [Suspect]
     Indication: DEPRESSION
     Route: 048
     Dates: end: 20080201
  2. PAROXAT [Suspect]
     Indication: DEPRESSION
     Route: 048
     Dates: end: 20080201
  3. BISOPROLOL FUMARATE [Concomitant]
  4. LASIX [Concomitant]
  5. BROMAZEPAM [Concomitant]

REACTIONS (1)
  - ALVEOLITIS [None]
